FAERS Safety Report 8735041 (Version 2)
Quarter: 2012Q4

REPORT INFORMATION
  Report Type: 
  Country: US (occurrence: US)
  Receive Date: 20120821
  Receipt Date: 20120828
  Transmission Date: 20130627
  Serious: Yes (Other)
  Sender: FDA-Public Use
  Company Number: CHPA2012US018141

PATIENT
  Age: 68 Year
  Sex: Female

DRUGS (8)
  1. EXCEDRIN EXTRA STRENGTH [Suspect]
     Indication: MIGRAINE
     Dosage: 1-2 DF, PRN
     Route: 048
  2. PLAVIX [Suspect]
     Indication: MYOCARDIAL INFARCTION
     Dosage: Unk, Unk
  3. ACETYLSALICYLIC ACID [Suspect]
     Indication: MYOCARDIAL INFARCTION
     Dosage: 325 mg, Unk
  4. ACETYLSALICYLIC ACID [Suspect]
     Dosage: 81 mg, Unk
  5. ANTIHYPERTENSIVE DRUGS [Suspect]
     Indication: MYOCARDIAL INFARCTION
     Dosage: Unk, Unk
  6. ANTIHYPERTENSIVE DRUGS [Suspect]
     Dosage: Unk, Unk
  7. BETA BLOCKING AGENTS [Suspect]
     Dosage: Unk, Unk
  8. TRANXENE [Concomitant]
     Indication: NERVE INJURY
     Dosage: UNK
     Dates: start: 1989

REACTIONS (6)
  - Myocardial infarction [Recovered/Resolved]
  - Thrombosis [Recovered/Resolved]
  - Blood cholesterol increased [Not Recovered/Not Resolved]
  - Contusion [Recovered/Resolved]
  - Headache [Not Recovered/Not Resolved]
  - Underdose [Unknown]
